FAERS Safety Report 22228482 (Version 2)
Quarter: 2024Q3

REPORT INFORMATION
  Report Type: Report from Study
  Country: GB (occurrence: GB)
  Receive Date: 20230419
  Receipt Date: 20240712
  Transmission Date: 20241017
  Serious: Yes (Hospitalization, Other)
  Sender: IPSEN
  Company Number: GB-KOREA IPSEN Pharma-2020-26382

PATIENT
  Age: 85 Year
  Sex: Female

DRUGS (1)
  1. LANREOTIDE ACETATE [Suspect]
     Active Substance: LANREOTIDE ACETATE
     Indication: Product used for unknown indication
     Route: 058
     Dates: start: 201409

REACTIONS (5)
  - Myocardial infarction [Unknown]
  - Hepatic neoplasm [Unknown]
  - Pancreatic carcinoma [Unknown]
  - Palpitations [Unknown]
  - Aortic stenosis [Unknown]
